FAERS Safety Report 18193201 (Version 2)
Quarter: 2021Q4

REPORT INFORMATION
  Report Type: Spontaneous
  Country: CA (occurrence: None)
  Receive Date: 20200825
  Receipt Date: 20211202
  Transmission Date: 20220303
  Serious: Yes (Hospitalization, Other)
  Sender: FDA-Public Use
  Company Number: 2020SF04976

PATIENT

DRUGS (12)
  1. QUETIAPINE FUMARATE [Suspect]
     Active Substance: QUETIAPINE FUMARATE
     Indication: Product used for unknown indication
     Dosage: 25.0MG UNKNOWN
     Route: 048
  2. QUETIAPINE FUMARATE [Suspect]
     Active Substance: QUETIAPINE FUMARATE
     Indication: Product used for unknown indication
     Dosage: 100.0MG UNKNOWN
     Route: 048
  3. ABILIFY [Suspect]
     Active Substance: ARIPIPRAZOLE
     Indication: Schizophrenia
     Dosage: 5.0MG UNKNOWN
     Route: 048
  4. ABILIFY [Suspect]
     Active Substance: ARIPIPRAZOLE
     Indication: Depression
     Dosage: 5.0MG UNKNOWN
     Route: 048
  5. ABILIFY [Suspect]
     Active Substance: ARIPIPRAZOLE
     Indication: Schizoaffective disorder depressive type
     Dosage: 5.0MG UNKNOWN
     Route: 048
  6. ABILIFY MAINTENA [Suspect]
     Active Substance: ARIPIPRAZOLE
     Indication: Schizophrenia
     Dosage: 300.0MG UNKNOWN
     Route: 030
  7. ABILIFY MAINTENA [Suspect]
     Active Substance: ARIPIPRAZOLE
     Indication: Schizoaffective disorder depressive type
     Dosage: 300.0MG UNKNOWN
     Route: 030
  8. ABILIFY MAINTENA [Suspect]
     Active Substance: ARIPIPRAZOLE
     Indication: Depression
     Dosage: 300.0MG UNKNOWN
     Route: 030
  9. LAMICTAL [Suspect]
     Active Substance: LAMOTRIGINE
     Indication: Product used for unknown indication
     Dosage: 200.0MG UNKNOWN
     Route: 065
  10. LAMICTAL [Suspect]
     Active Substance: LAMOTRIGINE
     Indication: Product used for unknown indication
     Dosage: 100.0MG UNKNOWN
     Route: 065
  11. WELLBUTRIN [Suspect]
     Active Substance: BUPROPION HYDROCHLORIDE
     Indication: Product used for unknown indication
     Dosage: 150.0MG UNKNOWN
     Route: 065
  12. SERTRALINE HYDROCHLORIDE [Concomitant]
     Active Substance: SERTRALINE HYDROCHLORIDE
     Route: 065

REACTIONS (7)
  - Anxiety [Not Recovered/Not Resolved]
  - Headache [Not Recovered/Not Resolved]
  - Infarction [Not Recovered/Not Resolved]
  - Nausea [Not Recovered/Not Resolved]
  - Vertigo [Not Recovered/Not Resolved]
  - Dizziness [Not Recovered/Not Resolved]
  - Off label use [Not Recovered/Not Resolved]
